FAERS Safety Report 26082363 (Version 1)
Quarter: 2025Q4

REPORT INFORMATION
  Report Type: Spontaneous
  Country: US (occurrence: None)
  Receive Date: 20251123
  Receipt Date: 20251123
  Transmission Date: 20260118
  Serious: Yes (Disabling)
  Sender: FDA-CTU
  Company Number: None

PATIENT
  Age: 36 Year
  Sex: Female
  Weight: 49.05 kg

DRUGS (2)
  1. CIPROFLOXACIN HYDROCHLORIDE [Suspect]
     Active Substance: CIPROFLOXACIN HYDROCHLORIDE
     Indication: Urinary tract infection
     Dosage: 14 TABLET(S) EVERY 12 HOURS ORAL
     Route: 048
     Dates: start: 20251117, end: 20251119
  2. CEPHALEXIN [Concomitant]
     Active Substance: CEPHALEXIN

REACTIONS (11)
  - Tendonitis [None]
  - Swelling [None]
  - Hypoaesthesia [None]
  - Joint stiffness [None]
  - Pain of skin [None]
  - Cognitive disorder [None]
  - Muscle spasms [None]
  - Muscle twitching [None]
  - Vertigo [None]
  - Gait disturbance [None]
  - Fatigue [None]

NARRATIVE: CASE EVENT DATE: 20251119
